FAERS Safety Report 8177789-1 (Version None)
Quarter: 2012Q1

REPORT INFORMATION
  Report Type: 
  Country: None (occurrence: None)
  Receive Date: 20120301
  Receipt Date: 20120207
  Transmission Date: 20120608
  Serious: Yes (Other)
  Sender: FDA-Public Use
  Company Number: US-ROCHE-790135

PATIENT
  Sex: Male
  Weight: 86.26 kg

DRUGS (1)
  1. ACCUTANE [Suspect]
     Indication: ACNE
     Route: 065
     Dates: start: 19960611, end: 19961201

REACTIONS (9)
  - IRRITABLE BOWEL SYNDROME [None]
  - LIP DRY [None]
  - INFLAMMATORY BOWEL DISEASE [None]
  - EMOTIONAL DISTRESS [None]
  - HAEMORRHOIDS [None]
  - SKIN FRAGILITY [None]
  - COLITIS ULCERATIVE [None]
  - RECTAL POLYP [None]
  - PRURITUS [None]
